FAERS Safety Report 4313756-3 (Version None)
Quarter: 2004Q1

REPORT INFORMATION
  Report Type: 
  Country: None (occurrence: None)
  Receive Date: 20040305
  Receipt Date: 20031223
  Transmission Date: 20041129
  Serious: Yes (Other)
  Sender: FDA-Public Use
  Company Number: USA-2003-0008878

PATIENT
  Age: 61 Year
  Sex: Male
  Weight: 113.4 kg

DRUGS (8)
  1. CHIROCAINE [Suspect]
     Indication: NERVE BLOCK
     Dosage: ML, SINGLE
     Dates: start: 20030724, end: 20030724
  2. LIDOCAINE [Suspect]
     Indication: NERVE BLOCK
     Dosage: ML, SINGLE
     Dates: start: 20030724, end: 20030724
  3. EPINEPHRINE [Suspect]
     Indication: ANAESTHESIA
     Dosage: MG, SINGLE
     Dates: start: 20030724, end: 20030724
  4. VERSED [Suspect]
     Indication: SEDATION
     Dosage: MG, SINGLE, INTRAVENOUS
     Route: 042
     Dates: start: 20030724
  5. FENTANYL [Suspect]
     Indication: SEDATION
     Dosage: MG, SINGLE, INTRAVENOUS
     Route: 042
     Dates: start: 20030724, end: 20030724
  6. PROPRANOLOL [Concomitant]
  7. ALLEGRA [Concomitant]
  8. MULTIVITAMIN [Concomitant]

REACTIONS (6)
  - APNOEA [None]
  - CONVULSION [None]
  - FEELING ABNORMAL [None]
  - LOSS OF CONSCIOUSNESS [None]
  - PALLOR [None]
  - TREMOR [None]
